FAERS Safety Report 8513107-4 (Version None)
Quarter: 2012Q3

REPORT INFORMATION
  Report Type: 
  Country: None (occurrence: None)
  Receive Date: 20120703
  Receipt Date: 20120626
  Transmission Date: 20120928
  Serious: Yes (Life-Threatening, Other)
  Sender: FDA-Public Use
  Company Number: PHHY2012JP020683

PATIENT
  Sex: Female

DRUGS (12)
  1. POTASSIUM CHLORIDE [Concomitant]
     Dosage: 500 ML, UNK
     Dates: end: 20120402
  2. PREDNISOLONE [Concomitant]
     Dosage: 15 MG, UNK
     Route: 048
  3. CORTICOSTEROIDS [Concomitant]
     Dosage: 1000 MG, QD
     Route: 051
     Dates: start: 20110704, end: 20110706
  4. GILENYA [Suspect]
     Dosage: 0.5 MG, QD
     Route: 048
     Dates: end: 20120501
  5. SELBEX [Concomitant]
     Dosage: 150 MG, UNK
     Route: 048
  6. LACTEC [Concomitant]
     Dates: end: 20120401
  7. IMMUNOADSORPTION THERAPY [Concomitant]
     Indication: APHERESIS
  8. LANSOPRAZOLE [Concomitant]
     Dosage: 30 MG, QD
     Route: 048
  9. GILENYA [Suspect]
     Indication: MULTIPLE SCLEROSIS
     Dosage: 0.5 MG, QD
     Route: 048
     Dates: start: 20120210, end: 20120331
  10. VITAMIN B12 [Concomitant]
     Dosage: 150 UG, UNK
     Route: 048
  11. ALENDRONATE SODIUM [Concomitant]
     Dosage: 35 MG, Q12H
     Route: 048
  12. BETASERON [Concomitant]
     Dosage: 8 MIU, QOD
     Route: 058

REACTIONS (14)
  - SEPTIC SHOCK [None]
  - LYMPHOCYTE COUNT DECREASED [None]
  - WHITE BLOOD CELL COUNT DECREASED [None]
  - VOMITING [None]
  - BRADYCARDIA [None]
  - NEUTROPHIL COUNT INCREASED [None]
  - ALTERED STATE OF CONSCIOUSNESS [None]
  - BLOOD PRESSURE DECREASED [None]
  - DISCOMFORT [None]
  - PALLOR [None]
  - INFECTION [None]
  - NAUSEA [None]
  - PYREXIA [None]
  - CHILLS [None]
